FAERS Safety Report 7344562-3 (Version None)
Quarter: 2011Q1

REPORT INFORMATION
  Report Type: 
  Country: None (occurrence: None)
  Receive Date: 20110307
  Receipt Date: 20110307
  Transmission Date: 20110831
  Serious: Yes (Life-Threatening, Hospitalization)
  Sender: FDA-Public Use
  Company Number: None

PATIENT
  Age: 85 Year
  Sex: Female
  Weight: 69.4003 kg

DRUGS (1)
  1. AMIODARONE HCL [Suspect]
     Indication: ATRIAL FIBRILLATION
     Dosage: 200 MG DAILY PO
     Route: 048
     Dates: start: 20091126, end: 20110211

REACTIONS (10)
  - FATIGUE [None]
  - CARDIO-RESPIRATORY ARREST [None]
  - TREMOR [None]
  - THYROXINE INCREASED [None]
  - HEPATIC ENZYME ABNORMAL [None]
  - COORDINATION ABNORMAL [None]
  - MYOCARDIAL INFARCTION [None]
  - MENTAL STATUS CHANGES [None]
  - GAIT DISTURBANCE [None]
  - CARDIAC FAILURE CONGESTIVE [None]
